FAERS Safety Report 6664672-3 (Version None)
Quarter: 2010Q1

REPORT INFORMATION
  Report Type: 
  Country: None (occurrence: None)
  Receive Date: 20100330
  Receipt Date: 20100302
  Transmission Date: 20100710
  Serious: Yes (Other)
  Sender: FDA-Public Use
  Company Number: 6058459

PATIENT
  Age: 70 Year
  Sex: Female

DRUGS (3)
  1. EUTIROX              (LEVOTHYROXINE SODIUM) [Suspect]
     Indication: THYROID THERAPY
     Dosage: 6.25 MG (12.5 MG, 1 IN 48 HR), ORAL
     Route: 048
     Dates: start: 20100101, end: 20100201
  2. LORENIN [Concomitant]
  3. CIPRALEX [Concomitant]

REACTIONS (4)
  - ARTHRALGIA [None]
  - OEDEMA PERIPHERAL [None]
  - PAIN IN EXTREMITY [None]
  - RHEUMATOID ARTHRITIS [None]
